FAERS Safety Report 21157262 (Version 1)
Quarter: 2022Q3

REPORT INFORMATION
  Report Type: Spontaneous
  Country: US (occurrence: None)
  Receive Date: 20220730
  Receipt Date: 20220730
  Transmission Date: 20221027
  Serious: Yes (Other)
  Sender: FDA-Public Use
  Company Number: None

PATIENT
  Sex: Male

DRUGS (1)
  1. LAMOTRIGINE [Suspect]
     Active Substance: LAMOTRIGINE
     Indication: Bipolar disorder
     Dosage: OTHER QUANTITY : 1 TABLET(S);?FREQUENCY : DAILY;?
     Route: 048
     Dates: start: 20220504, end: 20220725

REACTIONS (6)
  - Drug ineffective [None]
  - Product substitution issue [None]
  - Product use complaint [None]
  - Bipolar disorder [None]
  - Depression [None]
  - Hypomania [None]

NARRATIVE: CASE EVENT DATE: 20220504
